FAERS Safety Report 8957784 (Version 2)
Quarter: 2012Q4

REPORT INFORMATION
  Report Type: 
  Country: GB (occurrence: GB)
  Receive Date: 20121210
  Receipt Date: 20121213
  Transmission Date: 20130627
  Serious: Yes (Other)
  Sender: FDA-Public Use
  Company Number: GB-PFIZER INC-2007311285

PATIENT
  Age: 80 Year
  Sex: Female

DRUGS (5)
  1. IBUPROFEN [Suspect]
     Indication: PAIN IN HIP
     Dosage: 400MG THREE TIMES DAILY
     Route: 048
  2. DORZOLAMIDE [Concomitant]
     Indication: GLAUCOMA
     Route: 065
  3. LATANOPROST [Concomitant]
     Indication: GLAUCOMA
     Route: 065
  4. LEVOBUNOLOL HYDROCHLORIDE [Concomitant]
     Indication: GLAUCOMA
     Route: 065
  5. METHOTREXATE [Concomitant]
     Indication: PSORIASIS
     Dosage: 10 MG ONCE WEEKLY
     Route: 065

REACTIONS (1)
  - Acute generalised exanthematous pustulosis [Recovered/Resolved]
